FAERS Safety Report 15942987 (Version 2)
Quarter: 2019Q2

REPORT INFORMATION
  Report Type: Spontaneous
  Country: DE (occurrence: DE)
  Receive Date: 20190210
  Receipt Date: 20190409
  Transmission Date: 20190711
  Serious: Yes (Other)
  Sender: FDA-Public Use
  Company Number: DE-DRREDDYS-GER/GER/19/0107416

PATIENT
  Sex: Female
  Weight: 2 kg

DRUGS (1)
  1. LAMOTRIGINE. [Suspect]
     Active Substance: LAMOTRIGINE
     Indication: PRODUCT USED FOR UNKNOWN INDICATION
     Dosage: 2X200 MG/D (EVERY 12 HRS)
     Route: 063

REACTIONS (5)
  - Cholestasis [Unknown]
  - Blood alkaline phosphatase increased [Unknown]
  - Exposure via breast milk [Recovered/Resolved]
  - Hyperbilirubinaemia [Unknown]
  - Gamma-glutamyltransferase increased [Unknown]

NARRATIVE: CASE EVENT DATE: 20181212
